FAERS Safety Report 14269708 (Version 2)
Quarter: 2018Q1

REPORT INFORMATION
  Report Type: Spontaneous
  Country: DE (occurrence: DE)
  Receive Date: 20171211
  Receipt Date: 20180110
  Transmission Date: 20180508
  Serious: Yes (Other)
  Sender: FDA-Public Use
  Company Number: DE-OTSUKA-2015_009337

PATIENT
  Age: 18 Year
  Sex: Female
  Weight: 44 kg

DRUGS (3)
  1. ABILIFY [Suspect]
     Active Substance: ARIPIPRAZOLE
     Indication: SCHIZOPHRENIA
     Dosage: 7.5 MG, QD
     Route: 048
     Dates: start: 20150805, end: 20150821
  2. TAVOR (LORAZEPAM) [Concomitant]
     Active Substance: LORAZEPAM
     Indication: CATATONIA
     Dosage: 1 MG, QD
     Route: 048
     Dates: start: 20150728
  3. LORAZEPAM. [Concomitant]
     Active Substance: LORAZEPAM
     Indication: CATATONIA
     Dosage: 1 MG, QD
     Route: 048
     Dates: start: 20150728

REACTIONS (4)
  - Gamma-glutamyltransferase increased [Recovering/Resolving]
  - Prescribed underdose [Unknown]
  - Aspartate aminotransferase increased [Recovering/Resolving]
  - Alanine aminotransferase increased [Recovering/Resolving]

NARRATIVE: CASE EVENT DATE: 20150805
